FAERS Safety Report 9264280 (Version 1)
Quarter: 2013Q2

REPORT INFORMATION
  Report Type: Spontaneous
  Country: FR (occurrence: FR)
  Receive Date: 20130430
  Receipt Date: 20130430
  Transmission Date: 20140414
  Serious: Yes (Hospitalization)
  Sender: FDA-Public Use
  Company Number: FR-ASTRAZENECA-2013SE28774

PATIENT
  Age: 22724 Day
  Sex: Male

DRUGS (5)
  1. CRESTOR [Suspect]
     Indication: ACUTE MYOCARDIAL INFARCTION
     Route: 048
     Dates: start: 20130312, end: 20130318
  2. RAMIPRIL [Suspect]
     Indication: ACUTE MYOCARDIAL INFARCTION
     Route: 048
     Dates: start: 20130312, end: 20130318
  3. EFIENT [Suspect]
     Indication: ACUTE MYOCARDIAL INFARCTION
     Route: 048
     Dates: start: 20130312, end: 20130315
  4. BISOPROLOL [Suspect]
     Indication: ACUTE MYOCARDIAL INFARCTION
     Route: 048
     Dates: start: 20130312, end: 20130318
  5. KARDEGIC [Concomitant]
     Route: 048
     Dates: start: 20130312

REACTIONS (1)
  - Acute generalised exanthematous pustulosis [Recovering/Resolving]
